FAERS Safety Report 6593808-8 (Version None)
Quarter: 2010Q1

REPORT INFORMATION
  Report Type: 
  Country: None (occurrence: None)
  Receive Date: 20100218
  Receipt Date: 20100218
  Transmission Date: 20100710
  Serious: Yes (Life-Threatening, Hospitalization)
  Sender: FDA-Public Use
  Company Number: None

PATIENT
  Age: 20 Year
  Sex: Female
  Weight: 54.4316 kg

DRUGS (2)
  1. PLAN B [Suspect]
     Indication: POST COITAL CONTRACEPTION
     Dosage: TOOK AS DIRECTED
     Dates: start: 20080501, end: 20080501
  2. PLAN B [Concomitant]
     Indication: POST COITAL CONTRACEPTION

REACTIONS (6)
  - ASTHENIA [None]
  - DIZZINESS [None]
  - DRUG EXPOSURE DURING PREGNANCY [None]
  - FATIGUE [None]
  - HAEMORRHAGE [None]
  - RUPTURED ECTOPIC PREGNANCY [None]
